FAERS Safety Report 22229058 (Version 1)
Quarter: 2023Q2

REPORT INFORMATION
  Report Type: Spontaneous
  Country: US (occurrence: US)
  Receive Date: 20230419
  Receipt Date: 20230419
  Transmission Date: 20230721
  Serious: Yes (Hospitalization, Other)
  Sender: FDA-Public Use
  Company Number: US-PFIZER INC-202300161688

PATIENT
  Age: 33 Year
  Sex: Male

DRUGS (2)
  1. XELJANZ [Suspect]
     Active Substance: TOFACITINIB CITRATE
     Dosage: 10 MG, 2X/DAY
     Route: 048
     Dates: start: 202206
  2. HUMIRA [Suspect]
     Active Substance: ADALIMUMAB
     Dosage: UNK

REACTIONS (1)
  - Anaemia [Recovering/Resolving]

NARRATIVE: CASE EVENT DATE: 20230326
